FAERS Safety Report 12585600 (Version 1)
Quarter: 2016Q3

REPORT INFORMATION
  Report Type: Spontaneous
  Country: IT (occurrence: IT)
  Receive Date: 20160725
  Receipt Date: 20160725
  Transmission Date: 20161109
  Serious: Yes (Other)
  Sender: FDA-Public Use
  Company Number: IT-BRISTOL-MYERS SQUIBB COMPANY-BMS-2016-057263

PATIENT
  Age: 86 Year
  Sex: Female

DRUGS (1)
  1. COUMADIN [Suspect]
     Active Substance: WARFARIN SODIUM
     Indication: ATRIAL FIBRILLATION
     Dosage: 18.75 MG, QWK
     Route: 048
     Dates: start: 20110730, end: 20160627

REACTIONS (2)
  - Transfusion [Unknown]
  - Anaemia [Unknown]

NARRATIVE: CASE EVENT DATE: 20160621
